FAERS Safety Report 6708590-0 (Version None)
Quarter: 2010Q2

REPORT INFORMATION
  Report Type: 
  Country: None (occurrence: None)
  Receive Date: 20100503
  Receipt Date: 20100428
  Transmission Date: 20101027
  Serious: Yes (Other)
  Sender: FDA-Public Use
  Company Number: GB-ABBOTT-10P-167-0637537-00

PATIENT
  Sex: Male

DRUGS (1)
  1. KLARICID [Suspect]
     Indication: LOWER RESPIRATORY TRACT INFECTION

REACTIONS (3)
  - ACUTE PSYCHOSIS [None]
  - DELUSION [None]
  - PSYCHOTIC DISORDER [None]
